FAERS Safety Report 25926926 (Version 2)
Quarter: 2025Q4

REPORT INFORMATION
  Report Type: Spontaneous
  Country: EU (occurrence: EU)
  Receive Date: 20251015
  Receipt Date: 20251114
  Transmission Date: 20260118
  Serious: Yes (Other)
  Sender: BAUSCH AND LOMB
  Company Number: EU-TEVA-VS-3378812

PATIENT
  Age: 61 Year
  Sex: Male

DRUGS (3)
  1. DEXAMETHASONE [Suspect]
     Active Substance: DEXAMETHASONE
     Indication: Haemophagocytic lymphohistiocytosis
     Dosage: RECEIVED AT HIGH DOSE
     Route: 065
  2. DEXAMETHASONE [Suspect]
     Active Substance: DEXAMETHASONE
     Dosage: DOSE TAPERED OFF GRADUALLY
     Route: 065
  3. IMMUNOGLOBULIN [Concomitant]
     Indication: Haemophagocytic lymphohistiocytosis
     Route: 042

REACTIONS (1)
  - Steroid withdrawal syndrome [Unknown]
